FAERS Safety Report 6202225-1 (Version None)
Quarter: 2009Q2

REPORT INFORMATION
  Report Type: 
  Country: None (occurrence: None)
  Receive Date: 20090526
  Receipt Date: 20090519
  Transmission Date: 20091009
  Serious: Yes (Other)
  Sender: FDA-Public Use
  Company Number: GB-ABBOTT-09P-167-0574579-00

PATIENT
  Age: 60 Year
  Sex: Male

DRUGS (1)
  1. GOPTEN [Suspect]
     Indication: BLOOD PRESSURE
     Route: 048
     Dates: start: 20040101, end: 20090301

REACTIONS (1)
  - ERECTILE DYSFUNCTION [None]
